FAERS Safety Report 6814041-8 (Version None)
Quarter: 2010Q3

REPORT INFORMATION
  Report Type: 
  Country: None (occurrence: None)
  Receive Date: 20100702
  Receipt Date: 20100622
  Transmission Date: 20110219
  Serious: Yes (Other)
  Sender: FDA-Public Use
  Company Number: PHHY2010US40480

PATIENT

DRUGS (6)
  1. TEGRETOL [Suspect]
     Indication: EPILEPSY
     Dosage: UNK
  2. LYRICA [Suspect]
     Dosage: 150 MG, BID
     Dates: start: 20080101
  3. LYRICA [Suspect]
     Dosage: 450 MG, DAILY
  4. LYRICA [Suspect]
     Dosage: 150 MG, BID
  5. KEPPRA [Suspect]
     Dosage: 750 MG, BID
  6. ATIVAN [Concomitant]
     Indication: SLEEP DISORDER
     Dosage: 2 MG, DAILY

REACTIONS (9)
  - BLINDNESS UNILATERAL [None]
  - COMPLEX PARTIAL SEIZURES [None]
  - CONVULSION [None]
  - DIZZINESS [None]
  - EAR DISORDER [None]
  - FURUNCLE [None]
  - VIRAL INFECTION [None]
  - VISION BLURRED [None]
  - WEIGHT INCREASED [None]
